FAERS Safety Report 5929011-1 (Version None)
Quarter: 2008Q4

REPORT INFORMATION
  Report Type: 
  Country: None (occurrence: None)
  Receive Date: 20081024
  Receipt Date: 20081017
  Transmission Date: 20090506
  Serious: Yes (Hospitalization)
  Sender: FDA-Public Use
  Company Number: US-BAYER-200834124NA

PATIENT
  Age: 35 Year
  Sex: Female
  Weight: 103 kg

DRUGS (1)
  1. MIRENA [Suspect]
     Indication: CONTRACEPTION
     Route: 015
     Dates: start: 20060101, end: 20080922

REACTIONS (3)
  - PELVIC INFLAMMATORY DISEASE [None]
  - PELVIC PAIN [None]
  - WHITE BLOOD CELL COUNT INCREASED [None]
